FAERS Safety Report 17440592 (Version 8)
Quarter: 2021Q3

REPORT INFORMATION
  Report Type: Report from Study
  Country: None (occurrence: FR)
  Receive Date: 20200220
  Receipt Date: 20210907
  Transmission Date: 20211014
  Serious: Yes (Other)
  Sender: FDA-Public Use
  Company Number: FR-ABBVIE-18K-056-2584672-00

PATIENT
  Age: 71 Year
  Sex: Female
  Weight: 68 kg

DRUGS (17)
  1. MOVICOL [Concomitant]
     Active Substance: POLYETHYLENE GLYCOL 3350\POTASSIUM CHLORIDE\SODIUM BICARBONATE\SODIUM CHLORIDE
     Indication: CONSTIPATION
     Dates: start: 20180507, end: 20181227
  2. NISISCO [Concomitant]
     Active Substance: HYDROCHLOROTHIAZIDE\VALSARTAN
     Indication: HYPERTENSION
     Dates: start: 2016, end: 20190515
  3. COVID?19 VACCINE [Concomitant]
     Indication: COVID-19 IMMUNISATION
     Route: 030
     Dates: start: 20210414, end: 20210414
  4. TITANOREINE [Concomitant]
     Active Substance: CARRAGEENAN\TITANIUM\ZINC
     Indication: HAEMORRHOIDS
     Dates: start: 20180424, end: 20180628
  5. LORATADINE. [Concomitant]
     Active Substance: LORATADINE
     Indication: PRURITUS
     Dates: start: 20180417, end: 20180628
  6. VENCLYXTO [Suspect]
     Active Substance: VENETOCLAX
     Route: 048
     Dates: start: 20180417, end: 20180423
  7. VENCLYXTO [Suspect]
     Active Substance: VENETOCLAX
     Route: 048
     Dates: start: 20191118
  8. TARDYFERON [Concomitant]
     Active Substance: FERROUS SULFATE
     Indication: IRON DEFICIENCY
     Dates: start: 20200212, end: 20200220
  9. DAFALGAN [Concomitant]
     Active Substance: ACETAMINOPHEN
     Indication: COUGH
     Dates: start: 20180418, end: 20180430
  10. VENCLYXTO [Suspect]
     Active Substance: VENETOCLAX
     Indication: CHRONIC LYMPHOCYTIC LEUKAEMIA
     Route: 048
     Dates: start: 20180410, end: 20180416
  11. VENCLYXTO [Suspect]
     Active Substance: VENETOCLAX
     Route: 048
     Dates: start: 20180424, end: 20180429
  12. VENCLYXTO [Suspect]
     Active Substance: VENETOCLAX
     Route: 048
     Dates: start: 20180430, end: 20180506
  13. VENCLYXTO [Suspect]
     Active Substance: VENETOCLAX
     Route: 048
     Dates: start: 20180507, end: 20191111
  14. ALLOPURINOL. [Concomitant]
     Active Substance: ALLOPURINOL
     Indication: PROPHYLAXIS
     Dates: start: 20180328, end: 201812
  15. COTAREG [Concomitant]
     Active Substance: HYDROCHLOROTHIAZIDE\VALSARTAN
     Indication: HYPERTENSION
     Dates: start: 20190516
  16. DAFALGAN [Concomitant]
     Active Substance: ACETAMINOPHEN
     Indication: COUGH
     Dates: start: 20190516
  17. DAFALGAN [Concomitant]
     Active Substance: ACETAMINOPHEN
     Dates: start: 20180418, end: 20180430

REACTIONS (19)
  - Cough [Recovered/Resolved]
  - Pruritus [Recovered/Resolved]
  - Iron deficiency [Recovered/Resolved]
  - Weight increased [Not Recovered/Not Resolved]
  - Dysuria [Recovered/Resolved]
  - Haemorrhoids [Recovered/Resolved]
  - Presyncope [Recovered/Resolved]
  - Diverticulum [Not Recovered/Not Resolved]
  - Prurigo [Not Recovered/Not Resolved]
  - Constipation [Recovered/Resolved]
  - Neutropenia [Recovered/Resolved]
  - Cystitis [Recovered/Resolved]
  - Myalgia [Not Recovered/Not Resolved]
  - Hypokalaemia [Recovered/Resolved]
  - Intervertebral disc degeneration [Recovered/Resolved]
  - Neutropenia [Recovered/Resolved]
  - Prurigo [Recovered/Resolved]
  - Syncope [Recovered/Resolved]
  - Prurigo [Recovered/Resolved]

NARRATIVE: CASE EVENT DATE: 20180412
